FAERS Safety Report 7163334-6 (Version None)
Quarter: 2010Q4

REPORT INFORMATION
  Report Type: 
  Country: None (occurrence: None)
  Receive Date: 20101215
  Receipt Date: 20100330
  Transmission Date: 20110411
  Serious: Yes (Other)
  Sender: FDA-Public Use
  Company Number: FR-PFIZER INC-2010040164

PATIENT
  Age: 70 Year
  Sex: Female

DRUGS (1)
  1. LYRICA [Suspect]
     Indication: BACK PAIN
     Dosage: 50 MG, UNK

REACTIONS (3)
  - THROMBOCYTOPENIA [None]
  - VISION BLURRED [None]
  - WHITE BLOOD CELL DISORDER [None]
